FAERS Safety Report 9680817 (Version 1)
Quarter: 2013Q4

REPORT INFORMATION
  Report Type: Spontaneous
  Country: US (occurrence: None)
  Receive Date: 20131108
  Receipt Date: 20131108
  Transmission Date: 20140711
  Serious: Yes (Other)
  Sender: FDA-Public Use
  Company Number: None

PATIENT
  Age: 70 Year
  Sex: Male

DRUGS (1)
  1. HYDROXYUREA [Suspect]
     Indication: PLATELET COUNT ABNORMAL
     Dosage: 1 CAPSULE PER DAY, DAILY, BY MOUTH
     Route: 048
     Dates: start: 20130601, end: 20131008

REACTIONS (5)
  - Pruritus [None]
  - Rash erythematous [None]
  - Scab [None]
  - Rash generalised [None]
  - Rash macular [None]
